FAERS Safety Report 9803751 (Version 1)
Quarter: 2014Q1

REPORT INFORMATION
  Report Type: Spontaneous
  Country: US (occurrence: None)
  Receive Date: 20140103
  Receipt Date: 20140103
  Transmission Date: 20141002
  Serious: Yes (Other)
  Sender: FDA-Public Use
  Company Number: KAD201312-001760

PATIENT
  Sex: Female

DRUGS (2)
  1. RIBAVIRIN [Suspect]
  2. PEGASYS (PEGINTERFERON ALFA-2A) [Suspect]

REACTIONS (3)
  - Abortion spontaneous [None]
  - Exposure during pregnancy [None]
  - Exposure via partner [None]
